FAERS Safety Report 10938083 (Version 5)
Quarter: 2015Q3

REPORT INFORMATION
  Report Type: Spontaneous
  Country: JP (occurrence: JP)
  Receive Date: 20150321
  Receipt Date: 20150821
  Transmission Date: 20151125
  Serious: Yes (Other)
  Sender: FDA-Public Use
  Company Number: PHHY2015JP005196

PATIENT
  Age: 0 Day
  Sex: Male
  Weight: 1.6 kg

DRUGS (2)
  1. CICLOSPORIN [Suspect]
     Active Substance: CYCLOSPORINE
     Indication: FOETAL EXPOSURE DURING PREGNANCY
     Route: 064
  2. ENTECAVIR. [Suspect]
     Active Substance: ENTECAVIR
     Indication: FOETAL EXPOSURE DURING PREGNANCY
     Route: 064

REACTIONS (5)
  - Pneumothorax [Unknown]
  - Inguinal hernia [Unknown]
  - Pyloric stenosis [Unknown]
  - Foetal exposure during pregnancy [Unknown]
  - Premature baby [Unknown]

NARRATIVE: CASE EVENT DATE: 20140520
